FAERS Safety Report 7909308-6 (Version None)
Quarter: 2011Q4

REPORT INFORMATION
  Report Type: 
  Country: None (occurrence: None)
  Receive Date: 20111111
  Receipt Date: 20111107
  Transmission Date: 20120403
  Serious: Yes (Other)
  Sender: FDA-Public Use
  Company Number: US-PFIZER INC-2011254309

PATIENT
  Sex: Female
  Weight: 61.2 kg

DRUGS (9)
  1. IBUPROFEN (ADVIL) [Concomitant]
  2. GENOTROPIN [Suspect]
     Indication: GROWTH HORMONE DEFICIENCY
     Dosage: 0.4 MG, UNK
     Route: 058
     Dates: start: 20090301, end: 20110101
  3. PROZAC [Concomitant]
     Dosage: 40 MG, 1X/DAY
  4. TEMAZEPAM [Concomitant]
     Dosage: 15 MG, 1X/DAY
  5. CRESTOR [Concomitant]
  6. SYNTHROID [Concomitant]
     Dosage: 0.075 UNK, 1X/DAY
     Route: 048
  7. FEMRING [Concomitant]
  8. CLONAZEPAM [Concomitant]
     Dosage: 1 MG, 1X/DAY
     Route: 048
  9. FOSAMAX [Concomitant]

REACTIONS (2)
  - JAUNDICE [None]
  - BILE DUCT CANCER [None]
